FAERS Safety Report 7108367-0 (Version None)
Quarter: 2010Q4

REPORT INFORMATION
  Report Type: 
  Country: None (occurrence: None)
  Receive Date: 20101117
  Receipt Date: 20101108
  Transmission Date: 20110411
  Serious: Yes (Hospitalization)
  Sender: FDA-Public Use
  Company Number: A0788262A

PATIENT
  Age: 63 Year
  Sex: Male
  Weight: 92.7 kg

DRUGS (19)
  1. AVANDIA [Suspect]
     Indication: DIABETES MELLITUS
     Dosage: 4MG TWICE PER DAY
     Route: 048
     Dates: start: 20010730, end: 20070514
  2. LASIX [Concomitant]
  3. DIOVAN HCT [Concomitant]
  4. IMDUR [Concomitant]
  5. NEXIUM [Concomitant]
  6. NORVASC [Concomitant]
  7. RENAGEL [Concomitant]
  8. PHOSLO [Concomitant]
  9. ROCALTROL [Concomitant]
  10. KAYEXALATE [Concomitant]
  11. VICODIN [Concomitant]
  12. LIPITOR [Concomitant]
  13. ZETIA [Concomitant]
  14. PROCRIT [Concomitant]
  15. COMBIVENT [Concomitant]
  16. INSULIN [Concomitant]
  17. WELLBUTRIN [Concomitant]
  18. NEURONTIN [Concomitant]
  19. EPOGEN [Concomitant]

REACTIONS (3)
  - ACUTE CORONARY SYNDROME [None]
  - CARDIAC FAILURE CONGESTIVE [None]
  - MYOCARDIAL INFARCTION [None]
